FAERS Safety Report 7591279-6 (Version None)
Quarter: 2011Q3

REPORT INFORMATION
  Report Type: 
  Country: None (occurrence: None)
  Receive Date: 20110706
  Receipt Date: 20110627
  Transmission Date: 20111222
  Serious: No
  Sender: FDA-Public Use
  Company Number: US-BIOGENIDEC-2011BI023440

PATIENT
  Age: 39 Year
  Sex: Male

DRUGS (2)
  1. GILENYA [Concomitant]
     Dates: start: 20110531
  2. TYSABRI [Suspect]
     Indication: MULTIPLE SCLEROSIS
     Route: 042
     Dates: start: 20081023, end: 20110414

REACTIONS (1)
  - INSOMNIA [None]
